FAERS Safety Report 20378226 (Version 1)
Quarter: 2022Q1

REPORT INFORMATION
  Report Type: Spontaneous
  Country: US (occurrence: None)
  Receive Date: 20220125
  Receipt Date: 20220125
  Transmission Date: 20220423
  Serious: Yes (Life-Threatening, Hospitalization)
  Sender: FDA-Public Use
  Company Number: None

PATIENT
  Age: 60 Year
  Sex: Female

DRUGS (1)
  1. EVEROLIMUS [Suspect]
     Active Substance: EVEROLIMUS
     Indication: Metastases to adrenals
     Dosage: OTHER FREQUENCY : UNKNOWN;?
     Route: 048
     Dates: start: 202011

REACTIONS (3)
  - Adrenal insufficiency [None]
  - Brain neoplasm [None]
  - Therapy interrupted [None]

NARRATIVE: CASE EVENT DATE: 20220106
